FAERS Safety Report 10873152 (Version 1)
Quarter: 2015Q1

REPORT INFORMATION
  Report Type: Spontaneous
  Country: GB (occurrence: None)
  Receive Date: 20150223
  Receipt Date: 20150223
  Transmission Date: 20150721
  Serious: Yes (Other)
  Sender: FDA-Public Use
  Company Number: CL-612-2015

PATIENT
  Sex: Female

DRUGS (3)
  1. ESTRADIOL. [Concomitant]
     Active Substance: ESTRADIOL
  2. METRONIDAZOLE?UNK [Suspect]
     Active Substance: METRONIDAZOLE
     Route: 048
     Dates: start: 20150130, end: 20150202
  3. THYROXINE [Concomitant]
     Active Substance: LEVOTHYROXINE

REACTIONS (5)
  - Vomiting [None]
  - Myalgia [None]
  - Nausea [None]
  - Fatigue [None]
  - Influenza like illness [None]
